FAERS Safety Report 6158406-9 (Version None)
Quarter: 2009Q2

REPORT INFORMATION
  Report Type: 
  Country: None (occurrence: None)
  Receive Date: 20090417
  Receipt Date: 20090414
  Transmission Date: 20091009
  Serious: Yes (Life-Threatening, Hospitalization)
  Sender: FDA-Public Use
  Company Number: ES-BRISTOL-MYERS SQUIBB COMPANY-14585897

PATIENT
  Age: 88 Year
  Sex: Female

DRUGS (6)
  1. KARVEZIDE FILM-COATED TABS 300/12.5 MG [Suspect]
     Indication: HYPERTENSION
     Dosage: 1 DF= 300MG/12.5MG, 28 FILM COATED TABS
     Route: 048
     Dates: start: 20080701, end: 20090119
  2. FUROSEMIDE [Suspect]
     Indication: HYPERTENSION
     Dosage: FORM TABS , 40 MG TABS,  10 TABLETS
     Route: 048
     Dates: start: 20080701, end: 20090119
  3. DOXAZOSIN MESYLATE [Concomitant]
     Indication: HYPERTENSION
     Route: 048
     Dates: start: 20080701, end: 20090119
  4. OMEPRAZOLE [Concomitant]
     Indication: GASTRITIS PROPHYLAXIS
     Dosage: 20 MG. HARD CAPSULES
     Route: 048
     Dates: start: 20080701, end: 20090119
  5. CLOPIDOGREL BISULFATE [Concomitant]
     Indication: CEREBROVASCULAR ACCIDENT
     Dosage: FORM TABS, 28 FILM COATED TABLETS
     Route: 048
     Dates: start: 20080701, end: 20090119
  6. BROMAZEPAM [Concomitant]
     Indication: ANXIETY
     Dosage: 1.5 NG CAPSULES, 30 CAPSULES
     Route: 048
     Dates: start: 20080701, end: 20090119

REACTIONS (2)
  - ENCEPHALOPATHY [None]
  - HYPONATRAEMIA [None]
